FAERS Safety Report 12994077 (Version 1)
Quarter: 2016Q4

REPORT INFORMATION
  Report Type: Spontaneous
  Country: US (occurrence: US)
  Receive Date: 20161201
  Receipt Date: 20161201
  Transmission Date: 20170207
  Serious: Yes (Life-Threatening, Hospitalization)
  Sender: FDA-Public Use
  Company Number: None

PATIENT
  Age: 41 Year
  Sex: Female
  Weight: 110.25 kg

DRUGS (7)
  1. INVOKANA [Suspect]
     Active Substance: CANAGLIFLOZIN
     Indication: TYPE 2 DIABETES MELLITUS
     Dosage: ?          QUANTITY:1 TABLET(S);?
     Route: 048
     Dates: start: 20140801, end: 20160801
  2. GENERIC OF SYNTHROID [Concomitant]
  3. METOPROLOL TARTRATE. [Concomitant]
     Active Substance: METOPROLOL TARTRATE
  4. LANTUS [Concomitant]
     Active Substance: INSULIN GLARGINE
  5. HUMALOG [Concomitant]
     Active Substance: INSULIN LISPRO
  6. FENOFIBRATE. [Concomitant]
     Active Substance: FENOFIBRATE
  7. GENERIC OF DEPAKOTE [Concomitant]

REACTIONS (5)
  - Vomiting [None]
  - Abdominal pain upper [None]
  - Pancreatitis [None]
  - Pyrexia [None]
  - Lung disorder [None]

NARRATIVE: CASE EVENT DATE: 20160913
